FAERS Safety Report 4844791-4 (Version None)
Quarter: 2005Q4

REPORT INFORMATION
  Report Type: 
  Country: None (occurrence: None)
  Receive Date: 20051205
  Receipt Date: 20051128
  Transmission Date: 20060501
  Serious: Yes (Hospitalization)
  Sender: FDA-Public Use
  Company Number: AU-BRISTOL-MYERS SQUIBB COMPANY-13193867

PATIENT
  Age: 70 Year
  Sex: Female
  Weight: 75 kg

DRUGS (2)
  1. KARVEZIDE TABS 300MG/12.5MG [Suspect]
     Route: 048
     Dates: start: 20030211
  2. ASPIRIN [Suspect]

REACTIONS (3)
  - ANGIONEUROTIC OEDEMA [None]
  - DYSPHONIA [None]
  - URTICARIA [None]
